FAERS Safety Report 4525633-3 (Version None)
Quarter: 2004Q4

REPORT INFORMATION
  Report Type: 
  Country: None (occurrence: None)
  Receive Date: 20041213
  Receipt Date: 20041213
  Transmission Date: 20050328
  Serious: Yes (Disabling)
  Sender: FDA-Public Use
  Company Number: None

PATIENT
  Age: 54 Year
  Sex: Male
  Weight: 83.9154 kg

DRUGS (2)
  1. ZOLOFT [Suspect]
     Indication: BIPOLAR DISORDER
     Dosage: 100 MG TWICE DAILY ORAL
     Route: 048
     Dates: start: 19950101, end: 20040201
  2. ZOLOFT [Suspect]
     Indication: DEPRESSION
     Dosage: 100 MG TWICE DAILY ORAL
     Route: 048
     Dates: start: 19950101, end: 20040201

REACTIONS (6)
  - AKINESIA [None]
  - CONVULSION [None]
  - DEPERSONALISATION [None]
  - DEREALISATION [None]
  - HALLUCINATIONS, MIXED [None]
  - THINKING ABNORMAL [None]
